FAERS Safety Report 4297270-X (Version None)
Quarter: 2004Q1

REPORT INFORMATION
  Report Type: 
  Country: None (occurrence: None)
  Receive Date: 20040212
  Receipt Date: 20021230
  Transmission Date: 20041129
  Serious: Yes (Hospitalization)
  Sender: FDA-Public Use
  Company Number: A03200201619

PATIENT
  Age: 69 Year
  Sex: Female
  Weight: 82.1011 kg

DRUGS (2)
  1. AMBIEN [Suspect]
     Indication: INSOMNIA
     Dosage: 5 MG ONCE - ORAL
     Route: 048
     Dates: start: 20010824, end: 20010824
  2. BLOOD PRESSURE MEDICATION [Concomitant]

REACTIONS (2)
  - ANKLE FRACTURE [None]
  - FALL [None]
